FAERS Safety Report 4504602-3 (Version None)
Quarter: 2004Q4

REPORT INFORMATION
  Report Type: 
  Country: None (occurrence: None)
  Receive Date: 20041116
  Receipt Date: 20041103
  Transmission Date: 20050328
  Serious: Yes (Life-Threatening)
  Sender: FDA-Public Use
  Company Number: HQWYE225203NOV04

PATIENT
  Age: 76 Year
  Sex: Female

DRUGS (10)
  1. INIPOMP (PANTOPRAZOLE, UNSPEC) [Suspect]
  2. ACETYLSALICYLATE CALCIUM (ACETYLSALICYLATE CALCIUM, ) [Suspect]
  3. ANSILAN (MEDAZEPAM, ) [Suspect]
     Indication: NEUROSIS
     Dosage: SOME TIME(S), SOME DF ORAL
     Route: 048
  4. CLOMIPRAMINE HCL [Suspect]
     Indication: NEUROSIS
     Dosage: SOME TIME(S) SOME DF ORAL
     Route: 048
  5. CLONAZEPAM [Suspect]
     Indication: NEUROSIS
     Dosage: SOME TIME(S) 2 MG ORAL
     Route: 048
  6. HALOPERIDOL [Suspect]
     Indication: NEUROSIS
     Dosage: SOME TIME(S) 20 MG ORAL
     Route: 048
  7. NICARDIPINE (NICARDIPINE, ) [Suspect]
     Indication: MYOCARDIAL ISCHAEMIA
     Dosage: SOME TIME(S) 20 MG ORAL
     Route: 048
  8. LORAZEPAM [Suspect]
  9. TENORMIN [Suspect]
     Indication: MYOCARDIAL ISCHAEMIA
     Dosage: SOME TIME(S) 100 MG ORAL
     Route: 048
  10. TRIVASTAL (PIRIBEDIL, ) [Suspect]

REACTIONS (3)
  - ASTHENIA [None]
  - HEPATIC STEATOSIS [None]
  - HEPATITIS CHOLESTATIC [None]
